FAERS Safety Report 14109446 (Version 1)
Quarter: 2017Q4

REPORT INFORMATION
  Report Type: Spontaneous
  Country: US (occurrence: US)
  Receive Date: 20171019
  Receipt Date: 20171019
  Transmission Date: 20180321
  Serious: Yes (Death)
  Sender: FDA-Public Use
  Company Number: US-VIFOR (INTERNATIONAL) INC.-VIT-2017-00079

PATIENT
  Sex: Male
  Weight: 62.65 kg

DRUGS (5)
  1. CALCIUM ACETATE. [Concomitant]
     Active Substance: CALCIUM ACETATE
  2. VELTASSA [Suspect]
     Active Substance: PATIROMER
     Indication: HYPERKALAEMIA
     Route: 048
     Dates: start: 20161026
  3. AMLODIPINE [Concomitant]
     Active Substance: AMLODIPINE BESYLATE
  4. FUROSEMIDE. [Concomitant]
     Active Substance: FUROSEMIDE
  5. RENAPLEX-D [Concomitant]
     Active Substance: VITAMINS

REACTIONS (4)
  - Hypersensitivity [Fatal]
  - End stage renal disease [Fatal]
  - Hyperkalaemia [Fatal]
  - Type 2 diabetes mellitus [Fatal]

NARRATIVE: CASE EVENT DATE: 2016
